FAERS Safety Report 4368793-X (Version None)
Quarter: 2004Q2

REPORT INFORMATION
  Report Type: 
  Country: None (occurrence: None)
  Receive Date: 20040528
  Receipt Date: 20040521
  Transmission Date: 20050107
  Serious: Yes (Hospitalization, Other)
  Sender: FDA-Public Use
  Company Number: 2004214792US

PATIENT
  Age: 62 Year
  Sex: Female

DRUGS (14)
  1. BEXTRA [Suspect]
     Indication: ARTHRITIS
     Dosage: 10 MG, QD,
     Dates: start: 20030101
  2. CRESTOR [Concomitant]
  3. PREVACID [Concomitant]
  4. NEXIUM [Concomitant]
  5. LASIX [Concomitant]
  6. ^TAKA^ [Concomitant]
  7. VITAMINS NOS (VITAMINS NOS) [Concomitant]
  8. VICODIN [Concomitant]
  9. LOTREL [Concomitant]
  10. DIOVAN [Concomitant]
  11. MICARDIS [Concomitant]
  12. GLYBURIDE [Concomitant]
  13. GLUCOPHAGE [Concomitant]
  14. GLUCOVANCE [Concomitant]

REACTIONS (6)
  - BLOOD CHOLESTEROL INCREASED [None]
  - DIABETES MELLITUS [None]
  - DIABETIC COMA [None]
  - DRUG INEFFECTIVE [None]
  - DYSPEPSIA [None]
  - EATING DISORDER [None]
